FAERS Safety Report 23872936 (Version 1)
Quarter: 2024Q2

REPORT INFORMATION
  Report Type: Spontaneous
  Country: DK (occurrence: DK)
  Receive Date: 20240520
  Receipt Date: 20240520
  Transmission Date: 20240716
  Serious: Yes (Life-Threatening, Hospitalization, Other)
  Sender: FDA-Public Use
  Company Number: DK-EMA-DD-20191213-agrahari_p-125243

PATIENT
  Age: 71 Year
  Sex: Female
  Weight: 60 kg

DRUGS (5)
  1. SIMVASTATIN [Suspect]
     Active Substance: SIMVASTATIN
     Dosage: 40 MILLIGRAM, Q24H
     Route: 048
     Dates: start: 2007, end: 201712
  2. PALBOCICLIB [Suspect]
     Active Substance: PALBOCICLIB
     Indication: Metastases to bone
     Dosage: PALBOCICLIB 125 MG DAILY FOR 21 DAYS
     Route: 048
     Dates: start: 201711, end: 201712
  3. TRAMADOL [Concomitant]
     Active Substance: TRAMADOL\TRAMADOL HYDROCHLORIDE
     Indication: Back pain
     Dosage: UNK
     Dates: start: 2017
  4. ACETAMINOPHEN [Concomitant]
     Active Substance: ACETAMINOPHEN
     Indication: Back pain
     Dosage: UNK
     Dates: start: 2017
  5. FULVESTRANT [Concomitant]
     Active Substance: FULVESTRANT
     Indication: Metastases to bone
     Dosage: ON DAY ONE AND 14 RECEIVING 1 CYCLE
     Dates: start: 2017

REACTIONS (4)
  - Wheelchair user [Recovered/Resolved]
  - Rhabdomyolysis [Recovered/Resolved]
  - Gait disturbance [Recovered/Resolved]
  - Toxicity to various agents [Recovered/Resolved]

NARRATIVE: CASE EVENT DATE: 20170101
